FAERS Safety Report 7322861-9 (Version None)
Quarter: 2011Q1

REPORT INFORMATION
  Report Type: 
  Country: None (occurrence: None)
  Receive Date: 20110215
  Receipt Date: 20100817
  Transmission Date: 20110831
  Serious: Yes (Hospitalization)
  Sender: FDA-Public Use
  Company Number: 017274

PATIENT
  Sex: Male
  Weight: 88.4514 kg

DRUGS (9)
  1. CIPRO XR [Concomitant]
  2. FLAGYL [Concomitant]
  3. REMICADE [Suspect]
     Indication: CROHN'S DISEASE
     Dosage: (5 MG/KG QD INTRAVENOUS), (10 MG/KG QD)
     Route: 042
     Dates: start: 20030828, end: 20050210
  4. REMICADE [Suspect]
     Indication: CROHN'S DISEASE
     Dosage: (5 MG/KG QD INTRAVENOUS), (10 MG/KG QD)
     Route: 042
     Dates: start: 20050331, end: 20071217
  5. BUDESONIDE [Suspect]
     Indication: CROHN'S DISEASE
     Dosage: (WEANED OFF)
     Dates: start: 20090224, end: 20091001
  6. AZATHIOPRINE [Concomitant]
  7. MESALAMINE [Concomitant]
  8. CERTOLIZUMAB PEGOL [Suspect]
     Indication: CROHN'S DISEASE
     Dosage: (400 MG 1X/MONTH SUBCUTANEOUS)
     Route: 058
     Dates: start: 20090616
  9. PREDNISONE [Concomitant]

REACTIONS (2)
  - CROHN'S DISEASE [None]
  - ILEAL FISTULA [None]
